FAERS Safety Report 5154392-9 (Version None)
Quarter: 2006Q4

REPORT INFORMATION
  Report Type: 
  Country: None (occurrence: None)
  Receive Date: 20061114
  Receipt Date: 20061030
  Transmission Date: 20070319
  Serious: Yes (Other)
  Sender: FDA-Public Use
  Company Number: 2006134170

PATIENT
  Age: 40 Year
  Sex: Female
  Weight: 58 kg

DRUGS (2)
  1. TOLTERODINE TARTRATE [Suspect]
     Indication: STRESS URINARY INCONTINENCE
     Dosage: 4 MG (4 MG, 1 IN 1 D), ORAL
     Route: 048
     Dates: start: 20060906, end: 20061006
  2. DULOXETINE HYDROCHLORIDE (DULOXETINE HYDROCHLORIDE) [Suspect]
     Indication: STRESS URINARY INCONTINENCE
     Dosage: 20 MG (20 MG, 1 IN 1 D), ORAL
     Route: 048
     Dates: start: 20060320, end: 20060803

REACTIONS (2)
  - ECZEMA [None]
  - PHOTOSENSITIVITY REACTION [None]
